FAERS Safety Report 5532866-6 (Version None)
Quarter: 2007Q4

REPORT INFORMATION
  Report Type: 
  Country: None (occurrence: None)
  Receive Date: 20071129
  Receipt Date: 20071129
  Transmission Date: 20080405
  Serious: No
  Sender: FDA-Public Use
  Company Number: None

PATIENT
  Sex: Male

DRUGS (1)
  1. LIPITOR [Suspect]

REACTIONS (4)
  - AMYOTROPHIC LATERAL SCLEROSIS [None]
  - GAIT DISTURBANCE [None]
  - MUSCLE SPASMS [None]
  - PERONEAL NERVE PALSY [None]
